FAERS Safety Report 9803233 (Version 3)
Quarter: 2014Q2

REPORT INFORMATION
  Report Type: Spontaneous
  Country: NO (occurrence: NO)
  Receive Date: 20140108
  Receipt Date: 20140613
  Transmission Date: 20141212
  Serious: Yes (Other)
  Sender: FDA-Public Use
  Company Number: PHHY2013NO128379

PATIENT
  Age: 36 Year
  Sex: Female

DRUGS (4)
  1. GILENYA [Suspect]
     Indication: MULTIPLE SCLEROSIS
     Dosage: 0.5 MG, BID
     Route: 048
     Dates: start: 20130702, end: 20131108
  2. LIORESAL [Suspect]
     Dosage: 10 MG, TID
     Dates: start: 201307, end: 20131118
  3. SATIVEX [Suspect]
     Dates: start: 20130930, end: 20131108
  4. FAMPYRA [Suspect]
     Dosage: 10 MG, BID
     Dates: start: 201307, end: 20131108

REACTIONS (3)
  - Abortion spontaneous [Unknown]
  - Exposure during pregnancy [Unknown]
  - Overdose [Unknown]
